FAERS Safety Report 7569957-4 (Version None)
Quarter: 2011Q2

REPORT INFORMATION
  Report Type: 
  Country: None (occurrence: None)
  Receive Date: 20110622
  Receipt Date: 20110622
  Transmission Date: 20111010
  Serious: Yes (Other)
  Sender: FDA-Public Use
  Company Number: None

PATIENT
  Age: 69 Year
  Sex: Female
  Weight: 74.8435 kg

DRUGS (1)
  1. VERAPAMIL [Suspect]
     Indication: HYPERTENSION
     Dosage: 1 CAP 1 A DAY PO
     Route: 048
     Dates: start: 20110606, end: 20110610

REACTIONS (4)
  - DIZZINESS [None]
  - BALANCE DISORDER [None]
  - BRADYPHRENIA [None]
  - FATIGUE [None]
